FAERS Safety Report 9279849 (Version 1)
Quarter: 2013Q2

REPORT INFORMATION
  Report Type: Spontaneous
  Country: US (occurrence: US)
  Receive Date: 20130509
  Receipt Date: 20130509
  Transmission Date: 20140414
  Serious: No
  Sender: FDA-Public Use
  Company Number: US-BIOGENIDEC-2013BI040311

PATIENT
  Age: 49 Year
  Sex: Female

DRUGS (3)
  1. AVONEX [Suspect]
     Indication: MULTIPLE SCLEROSIS
     Route: 030
  2. AVONEX [Suspect]
     Indication: MULTIPLE SCLEROSIS
     Route: 030
     Dates: start: 19980707
  3. AVONEX [Suspect]
     Indication: MULTIPLE SCLEROSIS
     Route: 030
     Dates: start: 20120720

REACTIONS (8)
  - Bladder spasm [Not Recovered/Not Resolved]
  - Rectal haemorrhage [Recovered/Resolved]
  - Menstruation irregular [Unknown]
  - Procedural pain [Not Recovered/Not Resolved]
  - Hiccups [Not Recovered/Not Resolved]
  - Rectal prolapse [Not Recovered/Not Resolved]
  - Weight increased [Not Recovered/Not Resolved]
  - Hyperhidrosis [Not Recovered/Not Resolved]
